FAERS Safety Report 5058327-9 (Version None)
Quarter: 2006Q3

REPORT INFORMATION
  Report Type: 
  Country: None (occurrence: None)
  Receive Date: 20060721
  Receipt Date: 20060711
  Transmission Date: 20061208
  Serious: Yes (Hospitalization)
  Sender: FDA-Public Use
  Company Number: PHBS2006TR10351

PATIENT
  Age: 70 Year
  Sex: Male

DRUGS (4)
  1. STALEVO 100 [Suspect]
     Indication: PARKINSON'S DISEASE
     Dosage: 60 DF, ONCE/SINGLE
     Route: 048
  2. STALEVO 100 [Suspect]
     Route: 048
  3. CABASER [Suspect]
     Indication: PARKINSON'S DISEASE
     Route: 048
  4. CABASER [Suspect]
     Dosage: 70 DF, ONCE/SINGLE
     Route: 048

REACTIONS (4)
  - BRADYKINESIA [None]
  - HEART RATE DECREASED [None]
  - INTENTIONAL OVERDOSE [None]
  - SUICIDE ATTEMPT [None]
